FAERS Safety Report 8216523-3 (Version None)
Quarter: 2012Q1

REPORT INFORMATION
  Report Type: 
  Country: None (occurrence: None)
  Receive Date: 20120316
  Receipt Date: 20120312
  Transmission Date: 20120608
  Serious: Yes (Other)
  Sender: FDA-Public Use
  Company Number: CN-ABBOTT-12P-035-0915377-00

PATIENT
  Age: 38 Year
  Sex: Female

DRUGS (1)
  1. DEPAKENE [Suspect]
     Indication: EPILEPSY
     Dosage: GASTRO-RESISTANT TABLET, TWICE A DAY
     Route: 048
     Dates: start: 20120101

REACTIONS (2)
  - PRODUCT COUNTERFEIT [None]
  - EPILEPSY [None]
